FAERS Safety Report 7350885-4 (Version None)
Quarter: 2011Q1

REPORT INFORMATION
  Report Type: 
  Country: None (occurrence: None)
  Receive Date: 20110314
  Receipt Date: 20110308
  Transmission Date: 20110831
  Serious: No
  Sender: FDA-Public Use
  Company Number: US-PFIZER INC-2011051290

PATIENT
  Sex: Female
  Weight: 81.6 kg

DRUGS (1)
  1. PREMARIN [Suspect]
     Indication: VULVOVAGINAL DRYNESS
     Dosage: UNK
     Route: 067
     Dates: start: 20110301, end: 20110304

REACTIONS (4)
  - MOOD SWINGS [None]
  - DEPRESSION [None]
  - VULVOVAGINAL DISCOMFORT [None]
  - OEDEMA PERIPHERAL [None]
